FAERS Safety Report 11966322 (Version 1)
Quarter: 2016Q1

REPORT INFORMATION
  Report Type: Spontaneous
  Country: GB (occurrence: GB)
  Receive Date: 20160127
  Receipt Date: 20160127
  Transmission Date: 20160526
  Serious: Yes (Other)
  Sender: FDA-Public Use
  Company Number: GB-PFIZER INC-2016038139

PATIENT
  Age: 86 Year
  Sex: Male
  Weight: 85.72 kg

DRUGS (5)
  1. PIROXICAM. [Suspect]
     Active Substance: PIROXICAM
     Indication: ARTHRITIS
     Dosage: 1 DF, 3X/DAY
     Route: 061
     Dates: start: 2014
  2. COCODAMOL [Concomitant]
     Active Substance: ACETAMINOPHEN\CODEINE PHOSPHATE
     Dosage: 8/500
  3. PREDNISOLONE. [Concomitant]
     Active Substance: PREDNISOLONE
  4. SERTRALINE [Concomitant]
     Active Substance: SERTRALINE HYDROCHLORIDE
  5. FOLIC ACID. [Concomitant]
     Active Substance: FOLIC ACID

REACTIONS (9)
  - Penile swelling [Not Recovered/Not Resolved]
  - Penile haemorrhage [Not Recovered/Not Resolved]
  - Vision blurred [Not Recovered/Not Resolved]
  - Back pain [Recovering/Resolving]
  - Haematochezia [Recovered/Resolved]
  - Balanoposthitis [Not Recovered/Not Resolved]
  - Flatulence [Not Recovered/Not Resolved]
  - Abdominal distension [Not Recovered/Not Resolved]
  - Rectal haemorrhage [Unknown]
